FAERS Safety Report 8011442-X (Version None)
Quarter: 2011Q4

REPORT INFORMATION
  Report Type: 
  Country: None (occurrence: None)
  Receive Date: 20111123
  Receipt Date: 20111021
  Transmission Date: 20120403
  Serious: No
  Sender: FDA-Public Use
  Company Number: 333363

PATIENT
  Age: 75 Year
  Sex: Male

DRUGS (3)
  1. ACTOS [Suspect]
     Indication: PRODUCT USED FOR UNKNOWN INDICATION
     Dosage: 30 MG, QD 15 MG, QD
  2. VICTOZA [Suspect]
     Indication: TYPE 2 DIABETES MELLITUS
     Dosage: 1.8 MG, QD, SUBCUTANEOUS 1.2 MG, QD, SUBCUTANEOUS 0.6 MG, QD, SUBCUTANEOUS
     Route: 058
  3. VICTOZA [Suspect]
     Indication: TYPE 2 DIABETES MELLITUS
     Dosage: 1.8 MG, QD, SUBCUTANEOUS 1.2 MG, QD, SUBCUTANEOUS 0.6 MG, QD, SUBCUTANEOUS
     Route: 058
     Dates: start: 20110604

REACTIONS (4)
  - CONSTIPATION [None]
  - MALAISE [None]
  - FEELING ABNORMAL [None]
  - VOMITING [None]
